FAERS Safety Report 13744238 (Version 2)
Quarter: 2017Q3

REPORT INFORMATION
  Report Type: Report from Study
  Country: US (occurrence: US)
  Receive Date: 20170712
  Receipt Date: 20170918
  Transmission Date: 20171127
  Serious: Yes (Other)
  Sender: FDA-Public Use
  Company Number: US-ROCHE-1961820

PATIENT
  Sex: Female

DRUGS (2)
  1. CELLCEPT [Suspect]
     Active Substance: MYCOPHENOLATE MOFETIL\MYCOPHENOLATE MOFETIL HYDROCHLORIDE
     Route: 048
  2. CELLCEPT [Suspect]
     Active Substance: MYCOPHENOLATE MOFETIL\MYCOPHENOLATE MOFETIL HYDROCHLORIDE
     Indication: MYASTHENIA GRAVIS
     Dosage: 4 CAPS BID
     Route: 048

REACTIONS (12)
  - Intentional product use issue [Unknown]
  - Dyspnoea [Recovering/Resolving]
  - Off label use [Unknown]
  - Speech disorder [Unknown]
  - Alopecia [Not Recovered/Not Resolved]
  - Diarrhoea [Unknown]
  - Nail discolouration [Unknown]
  - Onychoclasis [Unknown]
  - Weight increased [Unknown]
  - Amenorrhoea [Unknown]
  - Temperature intolerance [Unknown]
  - Dysarthria [Not Recovered/Not Resolved]
